APPROVED DRUG PRODUCT: DOXEPIN HYDROCHLORIDE
Active Ingredient: DOXEPIN HYDROCHLORIDE
Strength: EQ 50MG BASE
Dosage Form/Route: CAPSULE;ORAL
Application: A207482 | Product #003 | TE Code: AB
Applicant: AMNEAL PHARMACEUTICALS CO GMBH
Approved: Jun 28, 2017 | RLD: No | RS: No | Type: RX